FAERS Safety Report 5500324-0 (Version None)
Quarter: 2007Q4

REPORT INFORMATION
  Report Type: 
  Country: None (occurrence: None)
  Receive Date: 20071025
  Receipt Date: 20071023
  Transmission Date: 20080405
  Serious: Yes (Death)
  Sender: FDA-Public Use
  Company Number: TCI2007A05462

PATIENT
  Age: 67 Year
  Sex: Male

DRUGS (7)
  1. LEUPROLIDE ACETATE [Suspect]
     Indication: PROSTATE CANCER STAGE IV
     Dosage: 11.25 MG (11.25 MG,1 IN 12 WK), SUBCUTANEOUS ; 11.25 MG (11.25 MG,1 IN 12 WK) SUBCUTANEOUS
     Route: 058
     Dates: start: 20060515, end: 20061130
  2. LEUPROLIDE ACETATE [Suspect]
     Indication: PROSTATE CANCER STAGE IV
     Dosage: 11.25 MG (11.25 MG,1 IN 12 WK), SUBCUTANEOUS ; 11.25 MG (11.25 MG,1 IN 12 WK) SUBCUTANEOUS
     Route: 058
     Dates: start: 20070322, end: 20070322
  3. CASODEX [Concomitant]
  4. HARNAL D (TAMSULOSIN HYDROCHLORIDE) (TABLETS) [Concomitant]
  5. FLUTAMIDE [Concomitant]
  6. HONVAN (FOSFESTROL TETRASODIUM) (INJECTION) [Concomitant]
  7. ESTRAMUSTINE PHOSPHATE SODIUM (CAPSULES) [Concomitant]

REACTIONS (3)
  - CONDITION AGGRAVATED [None]
  - METASTASES TO BONE [None]
  - PROSTATIC SPECIFIC ANTIGEN INCREASED [None]
